FAERS Safety Report 8328988-7 (Version None)
Quarter: 2012Q2

REPORT INFORMATION
  Report Type: 
  Country: None (occurrence: None)
  Receive Date: 20120502
  Receipt Date: 20120424
  Transmission Date: 20120825
  Serious: Yes (Other)
  Sender: FDA-Public Use
  Company Number: US-PFIZER INC-2012103546

PATIENT
  Sex: Female

DRUGS (2)
  1. LYRICA [Suspect]
     Indication: POST HERPETIC NEURALGIA
     Dosage: UNK
  2. DEPO-PROVERA [Suspect]
     Dosage: UNK

REACTIONS (3)
  - SURGERY [None]
  - PAIN [None]
  - HERPES ZOSTER [None]
